FAERS Safety Report 7334044-7 (Version None)
Quarter: 2011Q1

REPORT INFORMATION
  Report Type: 
  Country: None (occurrence: None)
  Receive Date: 20110302
  Receipt Date: 20110302
  Transmission Date: 20110831
  Serious: Yes (Other)
  Sender: FDA-Public Use
  Company Number: None

PATIENT
  Sex: Male
  Weight: 120.6568 kg

DRUGS (1)
  1. MS CONTIN GENERIC 100MG MALLINCKRODT [Suspect]
     Dosage: 100MG 8? ORAL
     Route: 048
     Dates: start: 19960101, end: 20110101

REACTIONS (2)
  - PRODUCT SUBSTITUTION ISSUE [None]
  - SEDATION [None]
